FAERS Safety Report 15278798 (Version 1)
Quarter: 2018Q3

REPORT INFORMATION
  Report Type: Report from Study
  Country: None (occurrence: NL)
  Receive Date: 20180815
  Receipt Date: 20180815
  Transmission Date: 20181010
  Serious: Yes (Other)
  Sender: FDA-Public Use
  Company Number: NL-ABBVIE-17K-114-2169127-00

PATIENT
  Sex: Male

DRUGS (3)
  1. MADOPAR [Concomitant]
     Active Substance: BENSERAZIDE HYDROCHLORIDE\LEVODOPA
     Indication: PRODUCT USED FOR UNKNOWN INDICATION
     Route: 065
  2. MOVICOLON [Concomitant]
     Active Substance: POLYETHYLENE GLYCOL 3350\POTASSIUM CHLORIDE\SODIUM BICARBONATE\SODIUM CHLORIDE
     Indication: ABNORMAL FAECES
  3. DUODOPA [Suspect]
     Active Substance: CARBIDOPA\LEVODOPA
     Indication: PARKINSON^S DISEASE
     Dosage: MD 12, CD 3, ED 3
     Route: 050
     Dates: start: 20171030

REACTIONS (17)
  - Depression [Not Recovered/Not Resolved]
  - Hallucination [Not Recovered/Not Resolved]
  - Stoma site discomfort [Recovered/Resolved]
  - Balance disorder [Not Recovered/Not Resolved]
  - Hallucination [Unknown]
  - Fibroma [Not Recovered/Not Resolved]
  - Gastrointestinal haemorrhage [Not Recovered/Not Resolved]
  - Stoma site discharge [Not Recovered/Not Resolved]
  - Cognitive disorder [Unknown]
  - Anxiety [Not Recovered/Not Resolved]
  - Tension [Not Recovered/Not Resolved]
  - Speech disorder [Not Recovered/Not Resolved]
  - Stress [Not Recovered/Not Resolved]
  - Abnormal dreams [Not Recovered/Not Resolved]
  - Fatigue [Not Recovered/Not Resolved]
  - Dyskinesia [Not Recovered/Not Resolved]
  - Salivary hypersecretion [Not Recovered/Not Resolved]

NARRATIVE: CASE EVENT DATE: 2017
